FAERS Safety Report 5266583-7 (Version None)
Quarter: 2007Q1

REPORT INFORMATION
  Report Type: 
  Country: None (occurrence: None)
  Receive Date: 20070315
  Receipt Date: 20070303
  Transmission Date: 20070707
  Serious: Yes (Other)
  Sender: FDA-Public Use
  Company Number: US-PFIZER INC-2006156171

PATIENT
  Sex: Male
  Weight: 138.3 kg

DRUGS (6)
  1. LYRICA [Suspect]
     Indication: NEURALGIA
     Route: 048
     Dates: start: 20060630, end: 20060705
  2. LYRICA [Suspect]
     Indication: DIABETIC NEUROPATHY
  3. TOPAMAX [Concomitant]
  4. MORPHINE [Concomitant]
  5. DILAUDID [Concomitant]
  6. OXYCONTIN [Concomitant]

REACTIONS (4)
  - DRUG ABUSER [None]
  - EYE HAEMORRHAGE [None]
  - VISION BLURRED [None]
  - VISUAL DISTURBANCE [None]
